FAERS Safety Report 17090004 (Version 2)
Quarter: 2020Q1

REPORT INFORMATION
  Report Type: Spontaneous
  Country: US (occurrence: US)
  Receive Date: 20191129
  Receipt Date: 20200204
  Transmission Date: 20200409
  Serious: No
  Sender: FDA-Public Use
  Company Number: US-CELGENEUS-USA-20191108248

PATIENT
  Age: 51 Year
  Sex: Male

DRUGS (3)
  1. OTEZLA [Suspect]
     Active Substance: APREMILAST
     Dosage: 60 MILLIGRAM
     Route: 048
  2. OTEZLA [Suspect]
     Active Substance: APREMILAST
     Indication: PSORIATIC ARTHROPATHY
     Dosage: SAMPLE TITRATE PACK
     Route: 048
     Dates: start: 20190505
  3. OTEZLA [Suspect]
     Active Substance: APREMILAST
     Indication: PSORIASIS
     Dosage: 120 MILLIGRAM
     Route: 048
     Dates: start: 201908

REACTIONS (5)
  - Peripheral swelling [Not Recovered/Not Resolved]
  - Psoriasis [Unknown]
  - Product dose omission [Unknown]
  - Joint swelling [Not Recovered/Not Resolved]
  - Psoriatic arthropathy [Unknown]

NARRATIVE: CASE EVENT DATE: 2019
